FAERS Safety Report 17235417 (Version 4)
Quarter: 2021Q1

REPORT INFORMATION
  Report Type: Spontaneous
  Country: GB (occurrence: GB)
  Receive Date: 20200106
  Receipt Date: 20210316
  Transmission Date: 20210419
  Serious: Yes (Life-Threatening, Hospitalization)
  Sender: FDA-Public Use
  Company Number: GB-TEVA-2019-GB-1162899

PATIENT
  Age: 27 Year
  Sex: Male

DRUGS (3)
  1. PERAMPANEL [Suspect]
     Active Substance: PERAMPANEL
     Dosage: EXACT AMOUNT OF DRUGS INGESTED WERE UNCLEAR, BUT HE MIGHT HAD INGESTED PERAMPANEL 42MG (I.E. 3.5 ...
     Route: 048
  2. LEVOTHYROXINE. [Suspect]
     Active Substance: LEVOTHYROXINE
     Dosage: EXACT AMOUNT OF DRUGS INGESTED WERE UNCLEAR, BUT HE MIGHT HAD INGESTED TRIVIAL AMOUNTS OF LEVOTHY...
     Route: 048
  3. PREGABALIN. [Suspect]
     Active Substance: PREGABALIN
     Dosage: EXACT AMOUNT OF DRUGS INGESTED WERE UNCLEAR, BUT HE MIGHT HAD INGESTED TRIVIAL AMOUNTS OF PREGABA...
     Route: 048

REACTIONS (8)
  - Respiratory failure [Recovered/Resolved]
  - Suicide attempt [Recovered/Resolved]
  - Hypoventilation [Recovered/Resolved]
  - Pneumonia aspiration [Recovered/Resolved]
  - Toxicity to various agents [Recovered/Resolved]
  - Intentional overdose [Recovered/Resolved]
  - Loss of consciousness [Recovered/Resolved]
  - Acute respiratory distress syndrome [Recovered/Resolved]
